FAERS Safety Report 5094474-3 (Version None)
Quarter: 2006Q3

REPORT INFORMATION
  Report Type: 
  Country: None (occurrence: None)
  Receive Date: 20060831
  Receipt Date: 20060822
  Transmission Date: 20061208
  Serious: Yes (Other)
  Sender: FDA-Public Use
  Company Number: US-ABBOTT-06P-163-0341595-00

PATIENT
  Age: 27 Year
  Sex: Female

DRUGS (2)
  1. DEPAKOTE [Suspect]
     Indication: EPILEPSY
     Route: 048
     Dates: start: 20010118, end: 20011007
  2. PHENYTOIN SODIUM [Suspect]
     Indication: EPILEPSY
     Route: 048
     Dates: start: 20010118, end: 20011007

REACTIONS (2)
  - PREMATURE SEPARATION OF PLACENTA [None]
  - UNINTENDED PREGNANCY [None]
